FAERS Safety Report 9424557 (Version 1)
Quarter: 2013Q3

REPORT INFORMATION
  Report Type: Spontaneous
  Country: US (occurrence: None)
  Receive Date: 20130725
  Receipt Date: 20130725
  Transmission Date: 20140515
  Serious: Yes (Life-Threatening, Hospitalization, Other)
  Sender: FDA-Public Use
  Company Number: 001569085A

PATIENT
  Age: 67 Year
  Sex: Female

DRUGS (2)
  1. MEANINGFUL BEAUTY SKIN BRIGHTENING DECOLLETE [Suspect]
     Dates: start: 20130704, end: 20130704
  2. MEANINGFUL BEAUTY ANTIOXDANT DAY CREME WITH SPF 20 [Suspect]
     Dates: start: 20130704, end: 20130707

REACTIONS (2)
  - Throat tightness [None]
  - Local swelling [None]
